FAERS Safety Report 4300461-2 (Version None)
Quarter: 2004Q1

REPORT INFORMATION
  Report Type: 
  Country: None (occurrence: None)
  Receive Date: 20040218
  Receipt Date: 20040204
  Transmission Date: 20041129
  Serious: Yes (Death)
  Sender: FDA-Public Use
  Company Number: WAES 0402ZAF00005

PATIENT
  Sex: Male

DRUGS (1)
  1. INDOCIN I.V. [Suspect]
     Indication: PATENT DUCTUS ARTERIOSUS
     Dosage: 0.24 MG/ML/Q28H IV
     Route: 042
     Dates: start: 20040120, end: 20040121

REACTIONS (2)
  - HAEMORRHAGE INTRACRANIAL [None]
  - PULMONARY HAEMORRHAGE [None]
